FAERS Safety Report 7702382-1 (Version None)
Quarter: 2011Q3

REPORT INFORMATION
  Report Type: 
  Country: None (occurrence: None)
  Receive Date: 20110822
  Receipt Date: 20110818
  Transmission Date: 20111222
  Serious: Yes (Life-Threatening, Other)
  Sender: FDA-Public Use
  Company Number: US-ABBOTT-11P-163-0847736-00

PATIENT
  Sex: Male

DRUGS (6)
  1. HUMIRA [Suspect]
     Indication: PSORIASIS
     Route: 058
     Dates: start: 20110120, end: 20110504
  2. COMMERCIAL HUMIRA [Concomitant]
     Indication: PRODUCT USED FOR UNKNOWN INDICATION
     Route: 058
     Dates: start: 20101215
  3. CLOBEX [Concomitant]
     Indication: PSORIASIS
     Dates: start: 20101116
  4. VECTICAL [Concomitant]
     Indication: PSORIASIS
     Dates: start: 20101116
  5. LEVAQUIN [Concomitant]
     Indication: PROPHYLACTIC CHEMOTHERAPY
     Dates: start: 20110810
  6. CELEBREX [Concomitant]
     Indication: PSORIASIS
     Dates: start: 20101116

REACTIONS (4)
  - MULTIPLE MYELOMA [None]
  - LEUKOPENIA [None]
  - MALAISE [None]
  - PYREXIA [None]
